FAERS Safety Report 23720017 (Version 7)
Quarter: 2024Q4

REPORT INFORMATION
  Report Type: Report from Study
  Country: IT (occurrence: IT)
  Receive Date: 20240408
  Receipt Date: 20241213
  Transmission Date: 20250115
  Serious: Yes (Hospitalization, Other)
  Sender: TAKEDA
  Company Number: IT-TAKEDA-2024TUS019745

PATIENT
  Age: 42 Year
  Sex: Male

DRUGS (14)
  1. TEDUGLUTIDE [Suspect]
     Active Substance: TEDUGLUTIDE
     Indication: Short-bowel syndrome
     Dosage: 3 MILLIGRAM, QD
     Dates: start: 20220112, end: 20240326
  2. TEDUGLUTIDE [Suspect]
     Active Substance: TEDUGLUTIDE
     Dosage: 3 MILLIGRAM, QD
     Dates: start: 20240410
  3. TEDUGLUTIDE [Suspect]
     Active Substance: TEDUGLUTIDE
  4. TEDUGLUTIDE [Suspect]
     Active Substance: TEDUGLUTIDE
  5. CEFTRIAXONE [Concomitant]
     Active Substance: CEFTRIAXONE
     Indication: Abdominal pain upper
     Dosage: UNK
  6. TRICORTIN [Concomitant]
     Indication: Paraesthesia
     Dosage: 1 DOSAGE FORM, QD
     Dates: start: 20230202, end: 202303
  7. Folina [Concomitant]
     Indication: Folate deficiency
     Dosage: 1 DOSAGE FORM, 3/WEEK
     Dates: start: 20230412, end: 20230707
  8. Folina [Concomitant]
     Dosage: 5 MILLIGRAM, QD
     Dates: start: 20240618, end: 20240722
  9. CALCIUM [Concomitant]
     Active Substance: CALCIUM
     Indication: Blood calcium decreased
     Dosage: 1000 MILLIGRAM, BID
     Dates: start: 20180509
  10. CHOLECALCIFEROL [Concomitant]
     Active Substance: CHOLECALCIFEROL
     Indication: Vitamin D deficiency
     Dosage: 100000 INTERNATIONAL UNIT, Q3MONTHS
     Dates: start: 2016
  11. ZINC SULFATE [Concomitant]
     Active Substance: ZINC SULFATE
     Indication: Blood zinc decreased
     Dosage: 200 MILLIGRAM, QOD
     Dates: start: 2019
  12. TOCALFA [Concomitant]
     Indication: Nutritional supplementation
     Dosage: UNK
  13. CITRAK [Concomitant]
     Indication: Nutritional supplementation
     Dosage: UNK UNK, QOD
     Dates: start: 2021
  14. Dobetin [Concomitant]
     Indication: Vitamin supplementation
     Dosage: UNK UNK, Q2WEEKS
     Dates: start: 20220708

REACTIONS (9)
  - Biliary fistula [Recovered/Resolved]
  - Cholecystitis [Recovered/Resolved]
  - Hypomagnesaemia [Recovered/Resolved]
  - Hypercalciuria [Recovered/Resolved]
  - Iron deficiency [Recovered/Resolved]
  - Urine chloride increased [Recovered/Resolved]
  - Effusion [Recovered/Resolved]
  - Vertigo [Recovered/Resolved]
  - Muscle strain [Recovered/Resolved]

NARRATIVE: CASE EVENT DATE: 20231201
